FAERS Safety Report 16074873 (Version 12)
Quarter: 2022Q2

REPORT INFORMATION
  Report Type: Report from Study
  Country: NL (occurrence: NL)
  Receive Date: 20190314
  Receipt Date: 20220510
  Transmission Date: 20220720
  Serious: Yes (Hospitalization, Other)
  Sender: FDA-Public Use
  Company Number: NL-ABBVIE-19S-114-2699953-00

PATIENT
  Age: 57 Year
  Sex: Male
  Weight: 72 kg

DRUGS (2)
  1. CARBIDOPA\LEVODOPA [Suspect]
     Active Substance: CARBIDOPA\LEVODOPA
     Indication: Parkinson^s disease
     Dosage: MD: 11.0 ML CD: 1.9 ML ED: 3.0 ML; REMAINS AT 16 HOURS
     Route: 050
     Dates: start: 20180423
  2. CARBIDOPA\LEVODOPA [Suspect]
     Active Substance: CARBIDOPA\LEVODOPA

REACTIONS (33)
  - Cerebral infarction [Recovered/Resolved]
  - Myocardial infarction [Not Recovered/Not Resolved]
  - Faeces hard [Not Recovered/Not Resolved]
  - Mood altered [Not Recovered/Not Resolved]
  - Emotional disorder [Not Recovered/Not Resolved]
  - Pain in extremity [Not Recovered/Not Resolved]
  - Arthralgia [Not Recovered/Not Resolved]
  - Anger [Not Recovered/Not Resolved]
  - Psychiatric symptom [Not Recovered/Not Resolved]
  - Depressed mood [Not Recovered/Not Resolved]
  - Appetite disorder [Recovered/Resolved]
  - Initial insomnia [Recovered/Resolved]
  - Paraesthesia [Not Recovered/Not Resolved]
  - Neck pain [Not Recovered/Not Resolved]
  - Tremor [Not Recovered/Not Resolved]
  - Hallucination, visual [Recovered/Resolved]
  - Dyskinesia [Recovered/Resolved]
  - Hallucination, visual [Recovered/Resolved]
  - Muscle rigidity [Not Recovered/Not Resolved]
  - On and off phenomenon [Recovered/Resolved]
  - Constipation [Not Recovered/Not Resolved]
  - Bradykinesia [Not Recovered/Not Resolved]
  - Underdose [Not Recovered/Not Resolved]
  - Extra dose administered [Not Recovered/Not Resolved]
  - Nausea [Not Recovered/Not Resolved]
  - Unevaluable event [Not Recovered/Not Resolved]
  - Faeces hard [Not Recovered/Not Resolved]
  - Decreased appetite [Unknown]
  - Weight increased [Recovered/Resolved]
  - Bowel movement irregularity [Not Recovered/Not Resolved]
  - Abnormal dreams [Recovered/Resolved]
  - Hallucination, visual [Not Recovered/Not Resolved]
  - Device occlusion [Not Recovered/Not Resolved]

NARRATIVE: CASE EVENT DATE: 20180725
